FAERS Safety Report 11839412 (Version 1)
Quarter: 2015Q4

REPORT INFORMATION
  Report Type: Report from Study
  Country: CA (occurrence: CA)
  Receive Date: 20151216
  Receipt Date: 20151216
  Transmission Date: 20160305
  Serious: Yes (Other)
  Sender: FDA-Public Use
  Company Number: CA-ROCHE-1677056

PATIENT
  Sex: Female

DRUGS (5)
  1. SYNTHROID [Concomitant]
     Active Substance: LEVOTHYROXINE SODIUM
  2. ACTEMRA [Suspect]
     Active Substance: TOCILIZUMAB
     Indication: RHEUMATOID ARTHRITIS
     Route: 042
     Dates: start: 20151126
  3. FOLIC ACID. [Concomitant]
     Active Substance: FOLIC ACID
  4. BACLOFEN. [Concomitant]
     Active Substance: BACLOFEN
  5. METHOTREXATE [Concomitant]
     Active Substance: METHOTREXATE

REACTIONS (3)
  - Insomnia [Unknown]
  - Blood glucose increased [Unknown]
  - Abdominal pain upper [Unknown]
